FAERS Safety Report 14269906 (Version 1)
Quarter: 2017Q4

REPORT INFORMATION
  Report Type: Spontaneous
  Country: JP (occurrence: JP)
  Receive Date: 20171211
  Receipt Date: 20171211
  Transmission Date: 20180321
  Serious: Yes (Life-Threatening, Other)
  Sender: FDA-Public Use
  Company Number: JP-OTSUKA-03100-JPN-06-0362

PATIENT
  Age: 71 Year
  Sex: Female
  Weight: 42 kg

DRUGS (12)
  1. ABILIFY [Suspect]
     Active Substance: ARIPIPRAZOLE
     Dosage: 4 MG, QD
     Route: 048
     Dates: start: 20060809, end: 20060818
  2. FLUNITRAZEPAM [Concomitant]
     Active Substance: FLUNITRAZEPAM
     Dosage: 1 MG, UNK
     Route: 048
     Dates: start: 20060809, end: 20060818
  3. ROHYPNOL [Concomitant]
     Active Substance: FLUNITRAZEPAM
     Dosage: 1 MG, QD
     Route: 048
     Dates: start: 20060809
  4. BAYASPIRIN [Concomitant]
     Active Substance: ASPIRIN
     Dosage: 100 MG, QD
     Route: 048
     Dates: start: 20060809
  5. DONEPEZIL. [Concomitant]
     Active Substance: DONEPEZIL
     Dosage: 5 MG, UNK
     Route: 048
     Dates: start: 20060809, end: 20060818
  6. TIAPRIDE [Suspect]
     Active Substance: TIAPRIDE
     Dosage: 75 MG, QD
     Route: 048
     Dates: start: 20060818, end: 20060818
  7. RYTHMODANE [Concomitant]
     Dosage: 100 MG, BID
     Route: 048
     Dates: start: 20060809
  8. ARICEPT [Suspect]
     Active Substance: DONEPEZIL HYDROCHLORIDE
     Dosage: 5 MG, QD
     Route: 048
     Dates: start: 20060809, end: 20060817
  9. CALBLOCK [Concomitant]
     Active Substance: AZELNIDIPINE
     Dosage: 8 MG, QD
     Route: 048
     Dates: start: 20060809
  10. ABILIFY [Suspect]
     Active Substance: ARIPIPRAZOLE
     Dosage: 4 MG, QD
     Route: 048
     Dates: start: 20060809, end: 20060817
  11. GRAMALIL [Suspect]
     Active Substance: TIAPRIDE HYDROCHLORIDE
     Dosage: 25 MG, TID
     Route: 048
     Dates: start: 20060809, end: 20060817
  12. BLOPRESS [Concomitant]
     Active Substance: CANDESARTAN CILEXETIL
     Dosage: 4 MG, QD
     Route: 048
     Dates: start: 20060809

REACTIONS (1)
  - Neuroleptic malignant syndrome [Recovered/Resolved]

NARRATIVE: CASE EVENT DATE: 20060817
